FAERS Safety Report 8787603 (Version 1)
Quarter: 2012Q4

REPORT INFORMATION
  Report Type: 
  Country: US (occurrence: US)
  Receive Date: 20120914
  Receipt Date: 20120914
  Transmission Date: 20130627
  Serious: No
  Sender: FDA-Public Use
  Company Number: US-VERTEX PHARMACEUTICAL INC.-AE-2012-009529

PATIENT
  Age: 47 Year
  Sex: Female
  Weight: 118.18 kg

DRUGS (13)
  1. INCIVEK [Suspect]
     Indication: HEPATITIS C
     Route: 048
     Dates: start: 20120625
  2. PEGASYS [Concomitant]
     Indication: HEPATITIS C
     Route: 058
     Dates: start: 20120626
  3. RIBAVIRIN [Concomitant]
     Indication: HEPATITIS C
     Route: 048
     Dates: start: 20120625
  4. LEVOTHYROXINE [Concomitant]
     Route: 048
  5. METOPROLOL [Concomitant]
     Indication: BLOOD PRESSURE
     Route: 048
  6. MORPHINE ER, IR [Concomitant]
     Indication: BACK PAIN
     Route: 048
  7. VALTREX [Concomitant]
     Route: 048
  8. ASPIRIN [Concomitant]
     Route: 048
  9. CYCLOBEZAPRINE HCL [Concomitant]
  10. GABAPENTIN [Concomitant]
  11. PREMPRO [Concomitant]
     Route: 048
  12. KLOR-CON [Concomitant]
     Route: 048
  13. FUROSEMIDE [Concomitant]
     Indication: OEDEMA
     Route: 048

REACTIONS (7)
  - Oral discomfort [Not Recovered/Not Resolved]
  - Throat irritation [Not Recovered/Not Resolved]
  - Oesophageal pain [Not Recovered/Not Resolved]
  - Arthralgia [Not Recovered/Not Resolved]
  - Erythema [Not Recovered/Not Resolved]
  - Rash pruritic [Recovered/Resolved]
  - Pruritus [Not Recovered/Not Resolved]
